FAERS Safety Report 19184481 (Version 1)
Quarter: 2021Q2

REPORT INFORMATION
  Report Type: Spontaneous
  Country: GB (occurrence: GB)
  Receive Date: 20210427
  Receipt Date: 20210427
  Transmission Date: 20210717
  Serious: Yes (Hospitalization, Disabling, Other)
  Sender: FDA-Public Use
  Company Number: GB-B.I. PHARMACEUTICALS,INC./RIDGEFIELD-2021-BI-099865

PATIENT
  Age: 22 Year
  Sex: Male

DRUGS (8)
  1. ATORVASTATIN [Concomitant]
     Active Substance: ATORVASTATIN
     Indication: ILL-DEFINED DISORDER
  2. TESTOSTERONE. [Concomitant]
     Active Substance: TESTOSTERONE
     Indication: ILL-DEFINED DISORDER
  3. LANSOPRAZOLE. [Concomitant]
     Active Substance: LANSOPRAZOLE
     Indication: ILL-DEFINED DISORDER
  4. GABAPENTIN. [Concomitant]
     Active Substance: GABAPENTIN
     Indication: ILL-DEFINED DISORDER
  5. TRAMADOL. [Concomitant]
     Active Substance: TRAMADOL
     Indication: ILL-DEFINED DISORDER
  6. METFORMIN [Concomitant]
     Active Substance: METFORMIN HYDROCHLORIDE
     Indication: ILL-DEFINED DISORDER
  7. NAPROXEN. [Concomitant]
     Active Substance: NAPROXEN
     Indication: ILL-DEFINED DISORDER
  8. JARDIANCE [Suspect]
     Active Substance: EMPAGLIFLOZIN
     Indication: TYPE 2 DIABETES MELLITUS
     Route: 048

REACTIONS (1)
  - Euglycaemic diabetic ketoacidosis [Recovered/Resolved]
